FAERS Safety Report 4436913-4 (Version None)
Quarter: 2004Q3

REPORT INFORMATION
  Report Type: 
  Country: None (occurrence: None)
  Receive Date: 20040726
  Receipt Date: 20040305
  Transmission Date: 20050211
  Serious: No
  Sender: FDA-Public Use
  Company Number: USA040361155

PATIENT
  Age: 90 Year
  Sex: Female

DRUGS (3)
  1. FORTEO [Suspect]
     Indication: ARTHRALGIA
     Dosage: 20 UG DAY
     Dates: start: 20030501
  2. FORTEO [Suspect]
     Indication: OSTEOARTHRITIS
     Dosage: 20 UG DAY
     Dates: start: 20030501
  3. FORTEO [Suspect]
     Indication: OSTEOPOROSIS
     Dosage: 20 UG DAY
     Dates: start: 20030501

REACTIONS (2)
  - JOINT SWELLING [None]
  - MUSCLE CRAMP [None]
